FAERS Safety Report 11867066 (Version 1)
Quarter: 2015Q4

REPORT INFORMATION
  Report Type: Spontaneous
  Country: US (occurrence: None)
  Receive Date: 20151223
  Receipt Date: 20151223
  Transmission Date: 20160305
  Serious: Yes (Death, Hospitalization)
  Sender: FDA-Public Use
  Company Number: None

PATIENT
  Age: 62 Year
  Sex: Male

DRUGS (1)
  1. ACETAMINOPHEN. [Suspect]
     Active Substance: ACETAMINOPHEN
     Indication: PAIN
     Route: 048
     Dates: start: 20080508, end: 20151112

REACTIONS (4)
  - Acute hepatic failure [None]
  - Haemodialysis [None]
  - Hepatorenal syndrome [None]
  - Alcoholism [None]

NARRATIVE: CASE EVENT DATE: 20151112
